FAERS Safety Report 4627392-2 (Version None)
Quarter: 2005Q1

REPORT INFORMATION
  Report Type: 
  Country: None (occurrence: None)
  Receive Date: 20050330
  Receipt Date: 20050321
  Transmission Date: 20050727
  Serious: Yes (Hospitalization, Other)
  Sender: FDA-Public Use
  Company Number: FRWYE520521MAR05

PATIENT
  Age: 14 Year
  Sex: Female

DRUGS (2)
  1. LEVONORGESTREL AND ETHINYL ESTRADIOL [Suspect]
     Route: 048
  2. COLPRONE TAB [Suspect]
     Route: 048

REACTIONS (2)
  - DRUG INTERACTION [None]
  - PULMONARY EMBOLISM [None]
